FAERS Safety Report 12681309 (Version 1)
Quarter: 2016Q3

REPORT INFORMATION
  Report Type: Spontaneous
  Country: US (occurrence: US)
  Receive Date: 20160824
  Receipt Date: 20160824
  Transmission Date: 20161109
  Serious: Yes (Other)
  Sender: FDA-Public Use
  Company Number: US-PFIZER INC-2016398821

PATIENT
  Age: 52 Year
  Sex: Female

DRUGS (1)
  1. XELJANZ [Suspect]
     Active Substance: TOFACITINIB CITRATE
     Dosage: 5 MG, UNK

REACTIONS (8)
  - Inflammation [Unknown]
  - Toxicity to various agents [Unknown]
  - Pain [Unknown]
  - Feeling abnormal [Unknown]
  - Renal impairment [Unknown]
  - Blood pressure abnormal [Unknown]
  - Condition aggravated [Unknown]
  - Pruritus [Unknown]
